FAERS Safety Report 4622385-3 (Version None)
Quarter: 2005Q1

REPORT INFORMATION
  Report Type: 
  Country: None (occurrence: None)
  Receive Date: 20050328
  Receipt Date: 20050316
  Transmission Date: 20050727
  Serious: Yes (Other)
  Sender: FDA-Public Use
  Company Number: 2005046105

PATIENT

DRUGS (1)
  1. EPANUTIN INJECTABLE (PHENYTOIN SODIUM) [Suspect]
     Indication: ILL-DEFINED DISORDER
     Dosage: 250 MG, INTRAVENOUS
     Route: 042

REACTIONS (1)
  - HYPERNATRAEMIA [None]
